FAERS Safety Report 9357036 (Version 1)
Quarter: 2013Q2

REPORT INFORMATION
  Report Type: Spontaneous
  Country: CN (occurrence: None)
  Receive Date: 20130617
  Receipt Date: 20130617
  Transmission Date: 20140414
  Serious: Yes (Death, Disabling)
  Sender: FDA-Public Use
  Company Number: FK201301973

PATIENT
  Age: 56 Year
  Sex: Male

DRUGS (1)
  1. INTRALIPID [Suspect]
     Indication: MEDICAL DIET
     Route: 042
     Dates: start: 20120722, end: 20120722

REACTIONS (16)
  - Chest discomfort [None]
  - Dyspnoea [None]
  - Infusion related reaction [None]
  - Heart rate increased [None]
  - Orthopnoea [None]
  - Oxygen saturation decreased [None]
  - Respiratory rate increased [None]
  - Pallor [None]
  - Peripheral coldness [None]
  - Dyspnoea [None]
  - Lung neoplasm malignant [None]
  - Malignant neoplasm progression [None]
  - Indifference [None]
  - Hydrothorax [None]
  - Pericardial effusion [None]
  - Condition aggravated [None]
